FAERS Safety Report 18512549 (Version 4)
Quarter: 2021Q1

REPORT INFORMATION
  Report Type: Spontaneous
  Country: US (occurrence: US)
  Receive Date: 20201117
  Receipt Date: 20210210
  Transmission Date: 20210419
  Serious: Yes (Hospitalization, Other)
  Sender: FDA-Public Use
  Company Number: US-SA-2020SA321242

PATIENT
  Age: 17 Year
  Sex: Female

DRUGS (29)
  1. DIVALPROEX [Suspect]
     Active Substance: DIVALPROEX SODIUM
     Dosage: 1250 MG, HS
  2. RISPERIDONE. [Suspect]
     Active Substance: RISPERIDONE
     Indication: PSYCHOTIC SYMPTOM
     Dosage: 1 MG, BID
  3. CLOZAPINE. [Suspect]
     Active Substance: CLOZAPINE
     Dosage: 100 MG, BID
  4. LITHIUM. [Concomitant]
     Active Substance: LITHIUM
     Indication: MOOD SWINGS
     Dosage: 300 MG, QD
  5. METFORMIN [Concomitant]
     Active Substance: METFORMIN HYDROCHLORIDE
     Indication: PROPHYLAXIS
     Dosage: 500 MG, QD, AT BREAKFAST
  6. RISPERIDONE. [Suspect]
     Active Substance: RISPERIDONE
     Dosage: 4 MG, HS
  7. CLOZAPINE. [Suspect]
     Active Substance: CLOZAPINE
     Dosage: 125 MG, HS
  8. OLANZAPINE. [Concomitant]
     Active Substance: OLANZAPINE
     Route: 030
  9. RISPERIDONE. [Suspect]
     Active Substance: RISPERIDONE
     Dosage: 2 MG,BID
  10. RISPERIDONE. [Suspect]
     Active Substance: RISPERIDONE
     Dosage: 3 MG, QD
  11. CLOZAPINE. [Suspect]
     Active Substance: CLOZAPINE
  12. CLONIDINE. [Concomitant]
     Active Substance: CLONIDINE
     Indication: PSYCHOTIC SYMPTOM
     Dosage: 0.1 MG, HS
  13. LITHIUM. [Concomitant]
     Active Substance: LITHIUM
     Dosage: 600 MG, BID
  14. DIVALPROEX [Suspect]
     Active Substance: DIVALPROEX SODIUM
     Indication: SCHIZOAFFECTIVE DISORDER BIPOLAR TYPE
     Dosage: 500 MG, QH
  15. RISPERIDONE. [Suspect]
     Active Substance: RISPERIDONE
     Dosage: DOSE WAS GRADUALLY DECREASED
  16. CLOZAPINE. [Suspect]
     Active Substance: CLOZAPINE
     Dosage: TITRATED SLOWLY UPWARD
  17. CLONIDINE. [Concomitant]
     Active Substance: CLONIDINE
     Indication: AGGRESSION
  18. LURASIDONE [Concomitant]
     Active Substance: LURASIDONE
     Indication: PSYCHOTIC SYMPTOM
     Dosage: 60 MG, QD
  19. RISPERIDONE. [Suspect]
     Active Substance: RISPERIDONE
     Dosage: 3 UNK
  20. SERTRALINE [Suspect]
     Active Substance: SERTRALINE HYDROCHLORIDE
     Indication: PSYCHOTIC SYMPTOM
     Dosage: 100 MG
  21. SERTRALINE [Suspect]
     Active Substance: SERTRALINE HYDROCHLORIDE
     Indication: DEPRESSIVE SYMPTOM
     Dosage: TAPERED
  22. DIPHENHYDRAMINE. [Suspect]
     Active Substance: DIPHENHYDRAMINE
     Indication: EXTRAPYRAMIDAL DISORDER
     Dosage: 25 MG, QD
  23. CLOZAPINE. [Suspect]
     Active Substance: CLOZAPINE
     Indication: SCHIZOAFFECTIVE DISORDER BIPOLAR TYPE
     Dosage: 25 MG, HS
  24. LITHIUM. [Concomitant]
     Active Substance: LITHIUM
     Dosage: 300 MG DAILY AND 600 MG AT BEDTIME
  25. DIPHENHYDRAMINE. [Suspect]
     Active Substance: DIPHENHYDRAMINE
     Dosage: 50 MG, HS
  26. RISPERIDONE. [Suspect]
     Active Substance: RISPERIDONE
     Dosage: 2 MG, HS
  27. CLOZAPINE. [Suspect]
     Active Substance: CLOZAPINE
     Dosage: CLOZAPINE 100 MG DAILY AND 125 MG AT BEDTIME
  28. NAPROXEN. [Concomitant]
     Active Substance: NAPROXEN
     Indication: PAIN
     Dosage: UNK, PRN
  29. LORAZEPAM. [Concomitant]
     Active Substance: LORAZEPAM
     Indication: ANXIETY
     Dosage: UNK UNK, PRN

REACTIONS (12)
  - Toxicity to various agents [Unknown]
  - Mental status changes [Unknown]
  - Insomnia [Unknown]
  - Mania [Unknown]
  - Off label use [Unknown]
  - Akathisia [Unknown]
  - Dry mouth [Recovered/Resolved]
  - Salivary hypersecretion [Recovered/Resolved]
  - Restlessness [Unknown]
  - Catatonia [Recovered/Resolved]
  - Retching [Unknown]
  - Musculoskeletal stiffness [Unknown]
